FAERS Safety Report 16192385 (Version 1)
Quarter: 2019Q2

REPORT INFORMATION
  Report Type: Spontaneous
  Country: GB (occurrence: GB)
  Receive Date: 20190412
  Receipt Date: 20190412
  Transmission Date: 20190711
  Serious: Yes (Other)
  Sender: FDA-Public Use
  Company Number: GB-ASTRAZENECA-2019SE53505

PATIENT
  Sex: Female

DRUGS (1)
  1. SEROQUEL [Suspect]
     Active Substance: QUETIAPINE FUMARATE
     Route: 048
     Dates: start: 2006

REACTIONS (9)
  - Night blindness [Unknown]
  - Pain [Unknown]
  - Insomnia [Not Recovered/Not Resolved]
  - Discomfort [Recovering/Resolving]
  - Stress [Unknown]
  - Gastrooesophageal reflux disease [Recovering/Resolving]
  - Fear [Unknown]
  - Headache [Unknown]
  - Screaming [Unknown]
